FAERS Safety Report 10219346 (Version 2)
Quarter: 2014Q2

REPORT INFORMATION
  Report Type: Spontaneous
  Country: KR (occurrence: None)
  Receive Date: 20140603
  Receipt Date: 20140619
  Transmission Date: 20141212
  Serious: Yes (Death, Hospitalization)
  Sender: FDA-Public Use
  Company Number: 2014-KR-006325

PATIENT
  Age: 14 Year
  Sex: Male

DRUGS (4)
  1. ERWINASE [Suspect]
     Indication: PRECURSOR T-LYMPHOBLASTIC LYMPHOMA/LEUKAEMIA
  2. DEXAMETHASONE (DEXAMETHASONE) [Suspect]
     Indication: PRECURSOR T-LYMPHOBLASTIC LYMPHOMA/LEUKAEMIA
  3. VINCRISTINE (VINCRISTINE) [Suspect]
     Indication: PRECURSOR T-LYMPHOBLASTIC LYMPHOMA/LEUKAEMIA
  4. DAUNORUBICIN (DAUNORUBICIN) [Suspect]
     Indication: PRECURSOR T-LYMPHOBLASTIC LYMPHOMA/LEUKAEMIA

REACTIONS (7)
  - Acute myeloid leukaemia [None]
  - Plasma cell myeloma [None]
  - Bronchopulmonary aspergillosis [None]
  - Blood lactate dehydrogenase increased [None]
  - Blood uric acid increased [None]
  - Aspartate aminotransferase increased [None]
  - Blood fibrinogen increased [None]
